FAERS Safety Report 8119174-4 (Version None)
Quarter: 2012Q1

REPORT INFORMATION
  Report Type: 
  Country: None (occurrence: None)
  Receive Date: 20120207
  Receipt Date: 20120124
  Transmission Date: 20120608
  Serious: Yes (Hospitalization)
  Sender: FDA-Public Use
  Company Number: US-ENDO PHARMACEUTICALS INC.-METH20120001

PATIENT
  Sex: Female
  Weight: 105.33 kg

DRUGS (1)
  1. METHYLPREDNISOLONE [Suspect]
     Indication: BRONCHITIS
     Dosage: 4 MG
     Route: 048
     Dates: start: 20120112, end: 20120101

REACTIONS (5)
  - DYSARTHRIA [None]
  - ANXIETY [None]
  - HYPOAESTHESIA [None]
  - MALAISE [None]
  - APHASIA [None]
